FAERS Safety Report 8476053-0 (Version None)
Quarter: 2012Q2

REPORT INFORMATION
  Report Type: 
  Country: None (occurrence: None)
  Receive Date: 20120628
  Receipt Date: 20120621
  Transmission Date: 20120825
  Serious: Yes (Other)
  Sender: FDA-Public Use
  Company Number: JP-BRISTOL-MYERS SQUIBB COMPANY-16714008

PATIENT
  Age: 62 Year
  Sex: Male
  Weight: 59 kg

DRUGS (8)
  1. ETODOLAC [Concomitant]
     Indication: RHEUMATOID ARTHRITIS
  2. PREDNISOLONE [Concomitant]
     Indication: RHEUMATOID ARTHRITIS
     Route: 048
     Dates: start: 20101026
  3. CRESTOR [Concomitant]
  4. BAKTAR [Concomitant]
     Indication: PROPHYLAXIS
  5. ORENCIA [Suspect]
     Indication: RHEUMATOID ARTHRITIS
     Dosage: 3 INFUSIONS, DATES:01MAR2011,15MAR11,29MAR11
     Route: 041
     Dates: start: 20110301
  6. OPALMON [Concomitant]
  7. ACTONEL [Concomitant]
     Indication: PROPHYLAXIS
  8. FAMOTIDINE [Concomitant]
     Indication: PROPHYLAXIS

REACTIONS (1)
  - VASCULITIS [None]
